FAERS Safety Report 10101949 (Version 1)
Quarter: 2014Q2

REPORT INFORMATION
  Report Type: Spontaneous
  Country: US (occurrence: None)
  Receive Date: 20140423
  Receipt Date: 20140423
  Transmission Date: 20141212
  Serious: Yes (Other)
  Sender: FDA-Public Use
  Company Number: None

PATIENT
  Age: 73 Year
  Sex: Female
  Weight: 61.24 kg

DRUGS (9)
  1. LEVOFLOXACIN 500 MG [Suspect]
     Indication: BRONCHITIS
     Route: 048
     Dates: start: 20140211, end: 20140217
  2. LISINOPRIL 10 MG [Concomitant]
  3. PROVASTATIN [Concomitant]
  4. OMEGA 3 [Concomitant]
  5. VIT C [Concomitant]
  6. CAL [Concomitant]
  7. MAG [Concomitant]
  8. ZINC [Concomitant]
  9. MULTIVITAMINS [Concomitant]

REACTIONS (3)
  - Tendonitis [None]
  - Muscular weakness [None]
  - Arthralgia [None]
